FAERS Safety Report 6061738-6 (Version None)
Quarter: 2009Q1

REPORT INFORMATION
  Report Type: 
  Country: None (occurrence: None)
  Receive Date: 20090202
  Receipt Date: 20090126
  Transmission Date: 20090719
  Serious: Yes (Other)
  Sender: FDA-Public Use
  Company Number: GR-TEVA-184501ISR

PATIENT
  Age: 67 Year
  Sex: Male

DRUGS (5)
  1. CISPLATIN [Suspect]
  2. DOCETAXEL [Suspect]
  3. VINORELBINE [Suspect]
  4. TOPOTECAN [Suspect]
  5. NEUPOGEN [Suspect]

REACTIONS (3)
  - BONE MARROW FAILURE [None]
  - HAEMOGLOBIN DECREASED [None]
  - MULTIPLE MYELOMA [None]
